FAERS Safety Report 9189639 (Version 1)
Quarter: 2013Q1

REPORT INFORMATION
  Report Type: Spontaneous
  Country: US (occurrence: None)
  Receive Date: 20130322
  Receipt Date: 20130322
  Transmission Date: 20140127
  Serious: Yes (Other)
  Sender: FDA-Public Use
  Company Number: None

PATIENT
  Age: 42 Year
  Sex: Female

DRUGS (2)
  1. PEGASYS [Suspect]
     Indication: CHRONIC HEPATITIS C
     Dosage: 180MCG ONCE A WEEK SQ
     Route: 058
     Dates: start: 20121119
  2. RIBAVIRIN [Suspect]
     Dosage: 400MG BID PO
     Route: 048
     Dates: start: 20121119

REACTIONS (2)
  - Depression [None]
  - Suicidal ideation [None]
